FAERS Safety Report 9900263 (Version 1)
Quarter: 2014Q1

REPORT INFORMATION
  Report Type: Report from Study
  Country: US (occurrence: US)
  Receive Date: 20140215
  Receipt Date: 20140215
  Transmission Date: 20141002
  Serious: Yes (Hospitalization)
  Sender: FDA-Public Use
  Company Number: US-ROCHE-1347428

PATIENT
  Sex: Female

DRUGS (2)
  1. CELLCEPT [Suspect]
     Indication: ENCEPHALITIS
     Dosage: 2 TABS
     Route: 048
  2. CELLCEPT [Suspect]
     Indication: SJOGREN^S SYNDROME

REACTIONS (1)
  - Bone disorder [Unknown]
